FAERS Safety Report 6917065-5 (Version None)
Quarter: 2010Q3

REPORT INFORMATION
  Report Type: 
  Country: None (occurrence: None)
  Receive Date: 20100810
  Receipt Date: 20100803
  Transmission Date: 20110219
  Serious: Yes (Hospitalization)
  Sender: FDA-Public Use
  Company Number: A0874660A

PATIENT
  Age: 45 Year
  Sex: Female

DRUGS (1)
  1. AVANDIA [Suspect]
     Route: 048
     Dates: start: 20020101, end: 20050101

REACTIONS (4)
  - BLOOD URINE PRESENT [None]
  - KIDNEY INFECTION [None]
  - MYOCARDIAL INFARCTION [None]
  - RENAL PAIN [None]
